FAERS Safety Report 10171376 (Version 1)
Quarter: 2014Q2

REPORT INFORMATION
  Report Type: Spontaneous
  Country: US (occurrence: None)
  Receive Date: 20140428
  Receipt Date: 20140428
  Transmission Date: 20141212
  Serious: No
  Sender: FDA-Public Use
  Company Number: PHEH2014US002254

PATIENT
  Age: 58 Year
  Sex: Female
  Weight: 47.7 kg

DRUGS (1)
  1. GILENYA [Suspect]
     Indication: MULTIPLE SCLEROSIS
     Route: 048
     Dates: start: 20131217

REACTIONS (7)
  - Palpitations [None]
  - Chills [None]
  - Anxiety [None]
  - Diarrhoea [None]
  - Dizziness [None]
  - Headache [None]
  - Back pain [None]
